FAERS Safety Report 16010493 (Version 1)
Quarter: 2019Q1

REPORT INFORMATION
  Report Type: Spontaneous
  Country: FR (occurrence: FR)
  Receive Date: 20190225
  Receipt Date: 20190225
  Transmission Date: 20190418
  Serious: Yes (Life-Threatening)
  Sender: FDA-Public Use
  Company Number: FR-FERRINGPH-2014FE01862

PATIENT

DRUGS (6)
  1. FIRMAGON [Suspect]
     Active Substance: DEGARELIX ACETATE
     Dosage: TWO INJECTIONS OF 120 MG (ROUTE NOT SPECIFIED)
     Route: 058
     Dates: start: 20140531, end: 20140531
  2. HEMIGOXINE [Concomitant]
     Active Substance: DIGOXIN
  3. KARDEGIC [Concomitant]
     Active Substance: ASPIRIN DL-LYSINE
     Dates: start: 20140620
  4. BISOPROLOL [Concomitant]
     Active Substance: BISOPROLOL
  5. FIRMAGON [Suspect]
     Active Substance: DEGARELIX ACETATE
     Indication: BENIGN PROSTATIC HYPERPLASIA
     Dosage: 80 MG, UNK
     Route: 058
     Dates: start: 20140628, end: 20140628
  6. MODURETIC 5-50 [Concomitant]
     Active Substance: AMILORIDE HYDROCHLORIDE\HYDROCHLOROTHIAZIDE

REACTIONS (2)
  - Product use in unapproved indication [Unknown]
  - Ischaemic stroke [Not Recovered/Not Resolved]

NARRATIVE: CASE EVENT DATE: 20140701
